FAERS Safety Report 25578688 (Version 1)
Quarter: 2025Q3

REPORT INFORMATION
  Report Type: Spontaneous
  Country: AU (occurrence: AU)
  Receive Date: 20250718
  Receipt Date: 20250718
  Transmission Date: 20251021
  Serious: Yes (Death)
  Sender: ROCHE
  Company Number: AU-ROCHE-10000339240

PATIENT

DRUGS (1)
  1. RISDIPLAM [Suspect]
     Active Substance: RISDIPLAM
     Indication: Product used for unknown indication
     Route: 065

REACTIONS (1)
  - Respiratory disorder [Fatal]
